FAERS Safety Report 7755669-0 (Version None)
Quarter: 2011Q3

REPORT INFORMATION
  Report Type: 
  Country: None (occurrence: None)
  Receive Date: 20110916
  Receipt Date: 20110913
  Transmission Date: 20111222
  Serious: Yes (Life-Threatening, Hospitalization)
  Sender: FDA-Public Use
  Company Number: IT-ROXANE LABORATORIES, INC.-2011-RO-01256RO

PATIENT
  Age: 75 Year
  Sex: Male

DRUGS (9)
  1. DONEPEZIL HYDROCHLORIDE [Suspect]
     Indication: DEMENTIA ALZHEIMER'S TYPE
     Dosage: 10 MG
  2. TICLOPIDINE HCL [Suspect]
     Indication: ABNORMAL BEHAVIOUR
  3. DONEPEZIL HYDROCHLORIDE [Suspect]
     Indication: ABNORMAL BEHAVIOUR
  4. QUETIAPINE [Suspect]
     Indication: DEMENTIA ALZHEIMER'S TYPE
     Dosage: 200 MG
  5. TICLOPIDINE HCL [Suspect]
     Indication: DEMENTIA ALZHEIMER'S TYPE
     Dosage: 500 MG
  6. CITALOPRAM HYDROBROMIDE [Suspect]
     Indication: DEMENTIA ALZHEIMER'S TYPE
     Dosage: 20 MG
  7. CIMETIDINE [Suspect]
     Indication: GASTRODUODENAL ULCER
  8. QUETIAPINE [Suspect]
     Indication: ABNORMAL BEHAVIOUR
  9. CITALOPRAM HYDROBROMIDE [Suspect]
     Indication: ABNORMAL BEHAVIOUR

REACTIONS (3)
  - SEROTONIN SYNDROME [None]
  - GASTRODUODENAL ULCER [None]
  - HAEMORRHAGE [None]
